FAERS Safety Report 24721867 (Version 1)
Quarter: 2024Q4

REPORT INFORMATION
  Report Type: Spontaneous
  Country: US (occurrence: US)
  Receive Date: 20241211
  Receipt Date: 20241211
  Transmission Date: 20250115
  Serious: Yes (Other)
  Sender: MERCK
  Company Number: US-009507513-2412USA003264

PATIENT
  Sex: Female

DRUGS (7)
  1. KEYTRUDA [Suspect]
     Active Substance: PEMBROLIZUMAB
     Indication: Breast cancer metastatic
     Dosage: UNK, EVERY 3 WEEKS
     Route: 042
     Dates: start: 20240820
  2. ROPINIROLE [Concomitant]
     Active Substance: ROPINIROLE
  3. LORAZEPAM [Concomitant]
     Active Substance: LORAZEPAM
  4. LYRICA [Concomitant]
     Active Substance: PREGABALIN
  5. ANASTROZOLE [Concomitant]
     Active Substance: ANASTROZOLE
  6. WARFARIN [Concomitant]
     Active Substance: WARFARIN
  7. CITALOPRAM [Concomitant]
     Active Substance: CITALOPRAM

REACTIONS (3)
  - Spinal fusion surgery [Recovered/Resolved]
  - Device dislocation [Recovered/Resolved]
  - Muscle spasms [Recovered/Resolved]

NARRATIVE: CASE EVENT DATE: 20240101
